FAERS Safety Report 6869472-7 (Version None)
Quarter: 2010Q3

REPORT INFORMATION
  Report Type: 
  Country: None (occurrence: None)
  Receive Date: 20100722
  Receipt Date: 20080830
  Transmission Date: 20110219
  Serious: Yes (Hospitalization, Other)
  Sender: FDA-Public Use
  Company Number: US-PFIZER INC-2008061876

PATIENT
  Sex: Male

DRUGS (4)
  1. CHANTIX [Suspect]
     Indication: SMOKING CESSATION THERAPY
     Dosage: STARTER KIT
     Dates: start: 20080506
  2. XANAX [Concomitant]
     Dates: start: 20080506
  3. MS CONTIN [Concomitant]
     Dates: start: 20080506
  4. PERCOCET [Concomitant]
     Dosage: 10/325MG,EVERY 6 HOURS
     Dates: start: 20080506

REACTIONS (1)
  - CEREBROVASCULAR ACCIDENT [None]
